FAERS Safety Report 7891020-3 (Version None)
Quarter: 2011Q4

REPORT INFORMATION
  Report Type: 
  Country: None (occurrence: None)
  Receive Date: 20111103
  Receipt Date: 20110728
  Transmission Date: 20120403
  Serious: No
  Sender: FDA-Public Use
  Company Number: US-AMGEN-USASP2011038438

PATIENT
  Sex: Female

DRUGS (8)
  1. VITAMIN B COMPLEX CAP [Concomitant]
  2. OMEGA 3                            /00931501/ [Concomitant]
     Dosage: 1200 MG, UNK
  3. MULTIVITAMIN                       /00097801/ [Concomitant]
  4. FOLIC ACID [Concomitant]
     Dosage: 5 MG, UNK
  5. ENBREL [Suspect]
     Indication: PRODUCT USED FOR UNKNOWN INDICATION
     Dosage: 50 MG, QWK
  6. METHOTREXATE [Concomitant]
     Dosage: 2.5 MG, UNK
  7. VITAMIN D [Concomitant]
     Dosage: 2000 IU, UNK
  8. CALCIUM +D                         /00188401/ [Concomitant]

REACTIONS (1)
  - RASH [None]
